FAERS Safety Report 8045210-X (Version None)
Quarter: 2012Q1

REPORT INFORMATION
  Report Type: 
  Country: None (occurrence: None)
  Receive Date: 20120113
  Receipt Date: 20120111
  Transmission Date: 20120608
  Serious: Yes (Other)
  Sender: FDA-Public Use
  Company Number: US-ROCHE-1029037

PATIENT
  Sex: Female
  Weight: 65.3 kg

DRUGS (2)
  1. NUTROPIN AQ [Suspect]
     Dosage: RESTARTED
  2. NUTROPIN AQ [Suspect]
     Indication: GROWTH HORMONE DEFICIENCY
     Dosage: EVERY NIGHT
     Route: 058
     Dates: start: 20100815, end: 20110102

REACTIONS (1)
  - URTICARIA [None]
